FAERS Safety Report 10169688 (Version 1)
Quarter: 2014Q2

REPORT INFORMATION
  Report Type: Spontaneous
  Country: US (occurrence: US)
  Receive Date: 20140513
  Receipt Date: 20140513
  Transmission Date: 20141212
  Serious: Yes (Other)
  Sender: FDA-Public Use
  Company Number: US-PFIZER INC-2014128984

PATIENT
  Age: 64 Year
  Sex: Female

DRUGS (2)
  1. XELJANZ [Suspect]
     Indication: RHEUMATOID ARTHRITIS
     Dosage: 5 MG, 2X/DAY
     Route: 048
  2. ADVIL [Concomitant]
     Dosage: 200 MG, UNK

REACTIONS (3)
  - Ulnar nerve injury [Unknown]
  - Sensory disturbance [Unknown]
  - Neuropathy peripheral [Unknown]
